FAERS Safety Report 5205842-0 (Version None)
Quarter: 2007Q1

REPORT INFORMATION
  Report Type: 
  Country: None (occurrence: None)
  Receive Date: 20070111
  Receipt Date: 20070108
  Transmission Date: 20070707
  Serious: Yes (Death, Life-Threatening, Hospitalization)
  Sender: FDA-Public Use
  Company Number: BE-BRISTOL-MYERS SQUIBB COMPANY-13636220

PATIENT
  Age: 61 Year
  Sex: Male

DRUGS (11)
  1. CARBOPLATIN [Suspect]
     Indication: SQUAMOUS CELL CARCINOMA
     Dates: start: 20060516, end: 20060516
  2. PANITUMUMAB [Suspect]
     Indication: SQUAMOUS CELL CARCINOMA
     Route: 042
     Dates: start: 20060411
  3. RADIATION THERAPY [Suspect]
     Indication: SQUAMOUS CELL CARCINOMA
     Dates: start: 20060411
  4. DURAGESIC-100 [Concomitant]
     Route: 062
     Dates: start: 20060818
  5. NADROPARIN CALCIUM [Concomitant]
     Route: 058
     Dates: start: 20060822
  6. ALPRAZOLAM [Concomitant]
     Route: 048
     Dates: start: 20060822
  7. MELPERONE HCL [Concomitant]
     Route: 048
     Dates: start: 20060828
  8. RANITIDINE HCL [Concomitant]
     Route: 048
     Dates: start: 20060829
  9. RISPERDAL [Concomitant]
     Route: 048
     Dates: start: 20060830
  10. TRAZODONE HCL [Concomitant]
     Route: 048
     Dates: start: 20060830
  11. BEFACT [Concomitant]
     Route: 048
     Dates: start: 20060831

REACTIONS (4)
  - BRONCHOPNEUMONIA [None]
  - MUCOSAL INFLAMMATION [None]
  - NECROSIS [None]
  - RESPIRATORY FAILURE [None]
